FAERS Safety Report 8384568-9 (Version None)
Quarter: 2012Q2

REPORT INFORMATION
  Report Type: 
  Country: None (occurrence: None)
  Receive Date: 20120524
  Receipt Date: 20120511
  Transmission Date: 20120825
  Serious: Yes (Hospitalization, Other)
  Sender: FDA-Public Use
  Company Number: FR-CELGENEUS-056-21880-11031541

PATIENT
  Sex: Female
  Weight: 60 kg

DRUGS (4)
  1. ASPIRIN [Concomitant]
     Indication: THROMBOSIS PROPHYLAXIS
     Dosage: 75 MILLIGRAM
     Route: 048
     Dates: start: 20110228
  2. DEXAMETHASONE [Suspect]
     Indication: MULTIPLE MYELOMA
     Dosage: 2.6667 MILLIGRAM
     Route: 048
     Dates: start: 20110124, end: 20110218
  3. REVLIMID [Suspect]
     Indication: MULTIPLE MYELOMA
     Dosage: 25 MILLIGRAM
     Route: 048
     Dates: start: 20110124, end: 20110214
  4. ASPIRIN [Concomitant]
     Indication: HEMIPLEGIA
     Dosage: 75 MILLIGRAM
     Route: 048
     Dates: start: 20110124, end: 20110223

REACTIONS (6)
  - HEMIPLEGIA [None]
  - APHASIA [None]
  - METASTASES TO CENTRAL NERVOUS SYSTEM [None]
  - HAEMOPHILUS INFECTION [None]
  - DYSPNOEA [None]
  - LUNG ADENOCARCINOMA METASTATIC [None]
